FAERS Safety Report 12610909 (Version 5)
Quarter: 2016Q4

REPORT INFORMATION
  Report Type: Spontaneous
  Country: US (occurrence: US)
  Receive Date: 20160801
  Receipt Date: 20161128
  Transmission Date: 20170207
  Serious: Yes (Death, Hospitalization)
  Sender: FDA-Public Use
  Company Number: US-PFIZER INC-2016347176

PATIENT
  Age: 78 Year
  Sex: Female
  Weight: 47 kg

DRUGS (12)
  1. LIPITOR [Concomitant]
     Active Substance: ATORVASTATIN CALCIUM
     Dosage: UNK
     Dates: end: 20160919
  2. ECHINACEA [Concomitant]
     Active Substance: ECHINACEA, UNSPECIFIED
     Dosage: UNK
  3. FERREX [Concomitant]
     Dosage: UNK, (TOOK FOR 2 WKS IN JULY)
  4. TYLENOL WITH CODEINE [Concomitant]
     Active Substance: ACETAMINOPHEN\CODEINE PHOSPHATE
     Dosage: UNK, AS NEEDED
  5. SUTENT [Suspect]
     Active Substance: SUNITINIB MALATE
     Dosage: 20 MG, CYCLIC  (2 WKS ON - 1 WK OFF TWICE)
     Dates: start: 20160811
  6. MEGACE [Concomitant]
     Active Substance: MEGESTROL ACETATE
     Indication: APPETITE DISORDER
     Dosage: UNK, (TAKEN OFF AND ON - DIDN^T LIKE)
  7. AMLODIPINE [Concomitant]
     Active Substance: AMLODIPINE BESYLATE
     Dosage: UNK
     Dates: start: 20160919
  8. DIOVAN [Concomitant]
     Active Substance: VALSARTAN
     Dosage: UNK
     Dates: end: 20160919
  9. SUTENT [Suspect]
     Active Substance: SUNITINIB MALATE
     Indication: RENAL CANCER METASTATIC
     Dosage: 50 MG, CYCLIC (28 DAYS ON/14 DAYS OFF)
     Dates: start: 20160629
  10. SUTENT [Suspect]
     Active Substance: SUNITINIB MALATE
     Dosage: 20 MG, CYCLIC (4 WKS ON - 2 WKS OFF)
     Dates: start: 20160630
  11. TYLENOL WITH CODEINE [Concomitant]
     Active Substance: ACETAMINOPHEN\CODEINE PHOSPHATE
     Dosage: 1 DF, UNK, (ONLY TOOK 1 PILL ON 23JUL)
  12. ADVAIR HFA [Concomitant]
     Active Substance: FLUTICASONE PROPIONATE\SALMETEROL XINAFOATE
     Dosage: UNK

REACTIONS (20)
  - Tumour lysis syndrome [Unknown]
  - Asthenia [Unknown]
  - Diarrhoea [Recovered/Resolved]
  - Pain in extremity [Unknown]
  - Death [Fatal]
  - Arthralgia [Unknown]
  - Activities of daily living impaired [Unknown]
  - Bone pain [Unknown]
  - Eating disorder [Unknown]
  - Dysphagia [Unknown]
  - Fatigue [Not Recovered/Not Resolved]
  - Somnolence [Unknown]
  - Infection [Unknown]
  - Depression [Unknown]
  - Decreased appetite [Unknown]
  - Dehydration [Unknown]
  - Urinary tract infection [Unknown]
  - Candida infection [Unknown]
  - Drug dose omission [Unknown]
  - Constipation [Unknown]

NARRATIVE: CASE EVENT DATE: 2016
